FAERS Safety Report 8318276-7 (Version None)
Quarter: 2012Q2

REPORT INFORMATION
  Report Type: 
  Country: None (occurrence: None)
  Receive Date: 20120427
  Receipt Date: 20120424
  Transmission Date: 20120825
  Serious: Yes (Other)
  Sender: FDA-Public Use
  Company Number: US-ROCHE-1063098

PATIENT
  Age: 82 Year
  Sex: Female

DRUGS (5)
  1. XELODA [Suspect]
     Indication: BREAST CANCER METASTATIC
     Dosage: DOSE: 500 MG IN MORNING AND 1000 MG IN EVENING
     Route: 048
     Dates: start: 20120110, end: 20120410
  2. XELODA [Suspect]
     Dosage: DOSE: 500 MG IN MORNING AND 1000 MG IN EVENING
     Route: 048
     Dates: start: 20120424
  3. XELODA [Suspect]
     Dosage: DOSE: 1000 MG IN MORNING AND 1500 MG IN EVENING.
     Route: 048
     Dates: start: 20120410, end: 20120424
  4. ZOMETA [Concomitant]
     Indication: OSTEOPOROSIS
     Route: 042
  5. FOSAMAX [Concomitant]
     Indication: OSTEOPOROSIS
     Route: 048

REACTIONS (7)
  - DECREASED APPETITE [None]
  - ALOPECIA [None]
  - NERVOUSNESS [None]
  - VISION BLURRED [None]
  - DYSGEUSIA [None]
  - BURNING SENSATION [None]
  - ANXIETY [None]
